FAERS Safety Report 6210904-5 (Version None)
Quarter: 2009Q2

REPORT INFORMATION
  Report Type: 
  Country: None (occurrence: None)
  Receive Date: 20090601
  Receipt Date: 20090520
  Transmission Date: 20091009
  Serious: Yes (Death, Hospitalization)
  Sender: FDA-Public Use
  Company Number: HQWYE230714OCT03

PATIENT
  Age: 73 Year
  Sex: Female
  Weight: 92 kg

DRUGS (8)
  1. GEMTUZUMAB OZOGAMICIN [Suspect]
     Route: 065
     Dates: start: 20030822, end: 20030822
  2. GEMTUZUMAB OZOGAMICIN [Suspect]
     Route: 065
     Dates: start: 20030905, end: 20030905
  3. ETOPOSIDE [Suspect]
     Dosage: ACTUAL DOSAGE UNKNOWN
     Route: 065
     Dates: start: 20030922, end: 20030924
  4. MEROPENEM [Concomitant]
     Dosage: DOSAGE UNKNOWN
     Route: 065
     Dates: start: 20031006, end: 20031010
  5. VANCOMYCIN HCL [Concomitant]
     Dosage: DOSAGE UNKNOWN
     Route: 065
     Dates: start: 20031003, end: 20031011
  6. CYTARABINE [Suspect]
     Dosage: ACTUAL DOSAGE UNKNOWN
     Route: 065
     Dates: start: 20030922, end: 20030925
  7. MITOXANTRONE HYDROCHLORIDE [Suspect]
     Dosage: ACTUAL DOSAGE UNKNOWN
     Route: 065
     Dates: start: 20030922, end: 20030924
  8. FILGRASTIM [Concomitant]
     Dosage: DOSAGE UNKNOWN
     Route: 065
     Dates: start: 20031006, end: 20031010

REACTIONS (2)
  - FEBRILE NEUTROPENIA [None]
  - SEPSIS [None]
